FAERS Safety Report 5912781-6 (Version None)
Quarter: 2008Q4

REPORT INFORMATION
  Report Type: 
  Country: None (occurrence: None)
  Receive Date: 20081008
  Receipt Date: 20080703
  Transmission Date: 20090506
  Serious: No
  Sender: FDA-Public Use
  Company Number: US-ABBOTT-08P-163-0460813-00

PATIENT
  Sex: Female
  Weight: 45.4 kg

DRUGS (2)
  1. DEPAKOTE [Suspect]
     Indication: CONVULSION
     Route: 048
     Dates: start: 20080101
  2. DONEPEZIL HCL [Concomitant]
     Indication: DEMENTIA
     Route: 048
     Dates: start: 20050101

REACTIONS (8)
  - ANOREXIA [None]
  - BALANCE DISORDER [None]
  - CONVULSION [None]
  - COORDINATION ABNORMAL [None]
  - DRUG LEVEL DECREASED [None]
  - GAIT DISTURBANCE [None]
  - GENERAL PHYSICAL HEALTH DETERIORATION [None]
  - WEIGHT DECREASED [None]
